FAERS Safety Report 9221155 (Version 1)
Quarter: 2013Q2

REPORT INFORMATION
  Report Type: Spontaneous
  Country: SK (occurrence: SK)
  Receive Date: 20130409
  Receipt Date: 20130409
  Transmission Date: 20140414
  Serious: Yes (Other)
  Sender: FDA-Public Use
  Company Number: SK-MERCK-1304SVK003415

PATIENT
  Sex: 0

DRUGS (1)
  1. SYCREST [Suspect]
     Route: 048

REACTIONS (1)
  - Suicide attempt [Unknown]
